FAERS Safety Report 4442535-1 (Version None)
Quarter: 2004Q3

REPORT INFORMATION
  Report Type: 
  Country: None (occurrence: None)
  Receive Date: 20040903
  Receipt Date: 20040712
  Transmission Date: 20050211
  Serious: Yes (Other)
  Sender: FDA-Public Use
  Company Number: 2004UW14418

PATIENT
  Age: 39 Year
  Sex: Male

DRUGS (1)
  1. CRESTOR [Suspect]

REACTIONS (3)
  - ABDOMINAL DISTENSION [None]
  - NAUSEA [None]
  - VOMITING [None]
